FAERS Safety Report 15645097 (Version 5)
Quarter: 2022Q3

REPORT INFORMATION
  Report Type: Spontaneous
  Country: JP (occurrence: None)
  Receive Date: 20181121
  Receipt Date: 20220811
  Transmission Date: 20221027
  Serious: Yes (Hospitalization)
  Sender: FDA-Public Use
  Company Number: JP-EISAI MEDICAL RESEARCH-EC-2018-048064

PATIENT
  Age: 80 Year
  Sex: Male
  Weight: 60 kg

DRUGS (11)
  1. LENVIMA [Suspect]
     Active Substance: LENVATINIB
     Indication: Hepatocellular carcinoma
     Route: 048
     Dates: start: 20180820, end: 20181118
  2. LENVIMA [Suspect]
     Active Substance: LENVATINIB
     Dosage: 4 MG PER DAY, 6 DAYS ON/1 DAY OFF
     Route: 048
  3. NIFEDIPINE [Concomitant]
     Active Substance: NIFEDIPINE
     Indication: Product used for unknown indication
     Route: 048
     Dates: start: 20181116
  4. VALSARTAN [Concomitant]
     Active Substance: VALSARTAN
     Indication: Product used for unknown indication
     Route: 048
     Dates: start: 20181116
  5. TRICHLORMETHIAZIDE [Concomitant]
     Active Substance: TRICHLORMETHIAZIDE
     Indication: Product used for unknown indication
     Route: 048
     Dates: start: 20181116
  6. URSODIOL [Concomitant]
     Active Substance: URSODIOL
     Indication: Product used for unknown indication
     Route: 048
     Dates: start: 20181116
  7. REBAMIPIDE [Concomitant]
     Active Substance: REBAMIPIDE
     Indication: Product used for unknown indication
     Route: 048
     Dates: start: 20181116
  8. HEPAACT [Concomitant]
     Indication: Product used for unknown indication
     Route: 048
     Dates: start: 20181116
  9. LEVOCARNITINE [Concomitant]
     Active Substance: LEVOCARNITINE
     Indication: Product used for unknown indication
     Route: 048
     Dates: start: 20181116
  10. LOPEMIN [Concomitant]
     Indication: Product used for unknown indication
     Route: 048
     Dates: start: 20181116
  11. KETOPROFEN [Concomitant]
     Active Substance: KETOPROFEN
     Indication: Product used for unknown indication
     Route: 062
     Dates: start: 20181116

REACTIONS (3)
  - Duodenal ulcer haemorrhage [Recovering/Resolving]
  - Shock haemorrhagic [Recovered/Resolved]
  - Melaena [Recovered/Resolved]

NARRATIVE: CASE EVENT DATE: 20181118
